FAERS Safety Report 9277057 (Version 4)
Quarter: 2013Q2

REPORT INFORMATION
  Report Type: Report from Study
  Country: DE (occurrence: DE)
  Receive Date: 20130507
  Receipt Date: 20130617
  Transmission Date: 20140414
  Serious: Yes (Hospitalization)
  Sender: FDA-Public Use
  Company Number: DE-BAXTER-2013BAX016281

PATIENT
  Sex: Male

DRUGS (21)
  1. ENDOXAN 1G [Suspect]
     Indication: B-CELL LYMPHOMA
     Route: 042
     Dates: start: 20130312
  2. ENDOXAN 1G [Suspect]
     Route: 042
     Dates: start: 20130405, end: 20130405
  3. RITUXIMAB [Suspect]
     Indication: B-CELL LYMPHOMA
     Route: 042
     Dates: start: 20130313
  4. RITUXIMAB [Suspect]
     Route: 042
     Dates: start: 20130316
  5. RITUXIMAB [Suspect]
     Route: 042
     Dates: start: 20130404, end: 20130404
  6. PREDNISONE [Suspect]
     Indication: B-CELL LYMPHOMA
     Route: 048
     Dates: start: 20130301
  7. PREDNISONE [Suspect]
     Route: 048
     Dates: start: 20130312
  8. PREDNISONE [Suspect]
     Route: 048
     Dates: start: 20130405, end: 20130405
  9. VINCRISTINE [Suspect]
     Indication: B-CELL LYMPHOMA
     Route: 042
     Dates: start: 20130312
  10. VINCRISTINE [Suspect]
     Route: 042
     Dates: start: 20130405, end: 20130405
  11. DOXORUBICIN [Suspect]
     Indication: B-CELL LYMPHOMA
     Route: 042
     Dates: start: 20130312
  12. DOXORUBICIN [Suspect]
     Route: 042
     Dates: start: 20130405, end: 20130405
  13. FILGRASTIM [Suspect]
     Indication: B-CELL LYMPHOMA
     Route: 058
     Dates: start: 20130315
  14. ESCITALOPRAM OXALATE [Concomitant]
     Indication: DEPRESSION
     Route: 048
     Dates: start: 20130322
  15. VALSARTAN [Concomitant]
     Indication: HYPERTENSION
     Route: 048
  16. ALLOPURINOL [Concomitant]
     Indication: HYPERURICAEMIA
     Route: 048
  17. PANTOPRAZOLE SODIUM [Concomitant]
     Indication: PROPHYLAXIS
     Route: 048
  18. CITALOPRAM [Concomitant]
     Indication: PRODUCT USED FOR UNKNOWN INDICATION
     Route: 065
  19. POTASSIUM CHLORIDE [Concomitant]
     Indication: PRODUCT USED FOR UNKNOWN INDICATION
     Route: 065
  20. LOPERAMIDE [Concomitant]
     Indication: DIARRHOEA
     Route: 065
  21. LOPERAMIDE [Concomitant]
     Indication: PYREXIA

REACTIONS (4)
  - Syncope [Recovered/Resolved]
  - Diarrhoea [Recovered/Resolved]
  - Pyrexia [Recovered/Resolved]
  - Pyrexia [Recovered/Resolved]
